FAERS Safety Report 5746350-8 (Version None)
Quarter: 2008Q2

REPORT INFORMATION
  Report Type: 
  Country: None (occurrence: None)
  Receive Date: 20080522
  Receipt Date: 20080515
  Transmission Date: 20081010
  Serious: Yes (Hospitalization)
  Sender: FDA-Public Use
  Company Number: PHHY2008BR08309

PATIENT
  Age: 60 Year
  Sex: Female

DRUGS (1)
  1. FORASEQ [Suspect]
     Dates: start: 20070501

REACTIONS (1)
  - RESPIRATORY DISORDER [None]
